FAERS Safety Report 4864002-3 (Version None)
Quarter: 2005Q4

REPORT INFORMATION
  Report Type: 
  Country: None (occurrence: None)
  Receive Date: 20051219
  Receipt Date: 20051209
  Transmission Date: 20060501
  Serious: Yes (Hospitalization)
  Sender: FDA-Public Use
  Company Number: GXKR2005SK02111

PATIENT
  Age: 17 Year
  Sex: Male

DRUGS (2)
  1. OSPAMOX (NGX) (AMOXICILLIN TRIHYDRATE) UNKNOWN [Suspect]
     Indication: BRONCHITIS
     Dosage: 500 MG, TID
  2. PNEUMOLYSIN [Concomitant]

REACTIONS (4)
  - FACE OEDEMA [None]
  - LEUKOCYTOSIS [None]
  - OEDEMA PERIPHERAL [None]
  - URTICARIA [None]
